FAERS Safety Report 16683131 (Version 1)
Quarter: 2019Q3

REPORT INFORMATION
  Report Type: Spontaneous
  Country: US (occurrence: US)
  Receive Date: 20190807
  Receipt Date: 20190807
  Transmission Date: 20191004
  Serious: Yes (Disabling)
  Sender: FDA-Public Use
  Company Number: None

PATIENT
  Age: 50 Year
  Sex: Male
  Weight: 103.5 kg

DRUGS (4)
  1. SYNTHROID [Concomitant]
     Active Substance: LEVOTHYROXINE SODIUM
  2. VIT D [Concomitant]
     Active Substance: VITAMIN D NOS
  3. VIT B 12 [Concomitant]
     Active Substance: CYANOCOBALAMIN
  4. GADOVIST [Suspect]
     Active Substance: GADOBUTROL
     Indication: X-RAY
     Route: 042
     Dates: start: 20180906, end: 20180906

REACTIONS (10)
  - Palpitations [None]
  - Dizziness [None]
  - Pain [None]
  - Small airways disease [None]
  - Pruritus [None]
  - Pigmentation disorder [None]
  - Dyspnoea [None]
  - Dysphagia [None]
  - Infusion site pain [None]
  - Small fibre neuropathy [None]

NARRATIVE: CASE EVENT DATE: 20180920
